FAERS Safety Report 20141450 (Version 1)
Quarter: 2021Q4

REPORT INFORMATION
  Report Type: Spontaneous
  Country: US (occurrence: None)
  Receive Date: 20211202
  Receipt Date: 20211202
  Transmission Date: 20220303
  Serious: Yes (Hospitalization)
  Sender: FDA-Public Use
  Company Number: None

PATIENT
  Age: 74 Year
  Sex: Male

DRUGS (1)
  1. BAMLANIVIMAB\ETESEVIMAB [Suspect]
     Active Substance: BAMLANIVIMAB\ETESEVIMAB
     Indication: COVID-19
     Dates: start: 20211127, end: 20211127

REACTIONS (7)
  - Infusion related reaction [None]
  - COVID-19 [None]
  - Condition aggravated [None]
  - COVID-19 pneumonia [None]
  - Acute myocardial infarction [None]
  - Acute myocardial infarction [None]
  - Hypoxia [None]

NARRATIVE: CASE EVENT DATE: 20211127
